FAERS Safety Report 20809491 (Version 1)
Quarter: 2022Q2

REPORT INFORMATION
  Report Type: Spontaneous
  Country: US (occurrence: None)
  Receive Date: 20220510
  Receipt Date: 20220510
  Transmission Date: 20220720
  Serious: Yes (Hospitalization)
  Sender: FDA-Public Use
  Company Number: None

PATIENT
  Age: 65 Year
  Sex: Female

DRUGS (2)
  1. BENLYSTA [Suspect]
     Active Substance: BELIMUMAB
     Indication: Osteoporosis
     Dosage: INJECT 1 PEN UNDER THE SKIN (SUBCUTANEOUS INJECTION) EVERY WEE?
     Route: 058
     Dates: start: 20200626
  2. RECLAST INJ 5/100ML [Concomitant]

REACTIONS (2)
  - Therapy interrupted [None]
  - Therapy non-responder [None]

NARRATIVE: CASE EVENT DATE: 20220509
